FAERS Safety Report 6835404-0 (Version None)
Quarter: 2010Q3

REPORT INFORMATION
  Report Type: 
  Country: None (occurrence: None)
  Receive Date: 20100713
  Receipt Date: 20100712
  Transmission Date: 20110219
  Serious: Yes (Other)
  Sender: FDA-Public Use
  Company Number: JP-SANOFI-AVENTIS-2010SA027497

PATIENT
  Age: 88 Year
  Sex: Male

DRUGS (4)
  1. PLAVIX [Suspect]
     Route: 048
     Dates: end: 20100512
  2. VALSARTAN [Concomitant]
     Indication: HYPERTENSION
     Route: 048
  3. FLUITRAN [Concomitant]
     Route: 048
  4. MUCODYNE [Concomitant]
     Indication: BRONCHITIS CHRONIC
     Route: 048

REACTIONS (2)
  - LIVER DISORDER [None]
  - PYREXIA [None]
